FAERS Safety Report 26132352 (Version 1)
Quarter: 2025Q4

REPORT INFORMATION
  Report Type: Spontaneous
  Country: EU (occurrence: EU)
  Receive Date: 20251208
  Receipt Date: 20251208
  Transmission Date: 20260118
  Serious: Yes (Life-Threatening, Hospitalization, Other)
  Sender: MYLAN
  Company Number: EU-ORIFARM-034572

PATIENT
  Age: 6 Decade
  Sex: Female

DRUGS (76)
  1. PANTOPRAZOLE [Interacting]
     Active Substance: PANTOPRAZOLE
     Indication: Product used for unknown indication
     Dosage: 40 MILLIGRAM, PRN
  2. PANTOPRAZOLE [Interacting]
     Active Substance: PANTOPRAZOLE
     Dosage: 40 MILLIGRAM, PRN
     Route: 048
  3. PANTOPRAZOLE [Interacting]
     Active Substance: PANTOPRAZOLE
     Dosage: 40 MILLIGRAM, PRN
     Route: 048
  4. PANTOPRAZOLE [Interacting]
     Active Substance: PANTOPRAZOLE
     Dosage: 40 MILLIGRAM, PRN
  5. ESCITALOPRAM [Interacting]
     Active Substance: ESCITALOPRAM OXALATE
     Indication: Anxiety
     Dosage: 10 MILLIGRAM, QD
  6. ESCITALOPRAM [Interacting]
     Active Substance: ESCITALOPRAM OXALATE
     Dosage: 10 MILLIGRAM, QD
     Route: 048
  7. ESCITALOPRAM [Interacting]
     Active Substance: ESCITALOPRAM OXALATE
     Dosage: 10 MILLIGRAM, QD
     Route: 048
  8. ESCITALOPRAM [Interacting]
     Active Substance: ESCITALOPRAM OXALATE
     Dosage: 10 MILLIGRAM, QD
  9. METOCLOPRAMIDE [Interacting]
     Active Substance: METOCLOPRAMIDE
     Indication: Vomiting
     Dosage: 10 MILLIGRAM (FOUR HOURS APART)
  10. METOCLOPRAMIDE [Interacting]
     Active Substance: METOCLOPRAMIDE
     Dosage: 10 MILLIGRAM (FOUR HOURS APART)
     Route: 042
  11. METOCLOPRAMIDE [Interacting]
     Active Substance: METOCLOPRAMIDE
     Dosage: 10 MILLIGRAM (FOUR HOURS APART)
     Route: 042
  12. METOCLOPRAMIDE [Interacting]
     Active Substance: METOCLOPRAMIDE
     Dosage: 10 MILLIGRAM (FOUR HOURS APART)
  13. BUPROPION HYDROCHLORIDE\NALTREXONE HYDROCHLORIDE [Interacting]
     Active Substance: BUPROPION HYDROCHLORIDE\NALTREXONE HYDROCHLORIDE
     Indication: Obesity
     Dosage: 360 MG BUPROPION AND 32 MG NALTREXONE
  14. BUPROPION HYDROCHLORIDE\NALTREXONE HYDROCHLORIDE [Interacting]
     Active Substance: BUPROPION HYDROCHLORIDE\NALTREXONE HYDROCHLORIDE
     Dosage: 360 MG BUPROPION AND 32 MG NALTREXONE
     Route: 048
  15. BUPROPION HYDROCHLORIDE\NALTREXONE HYDROCHLORIDE [Interacting]
     Active Substance: BUPROPION HYDROCHLORIDE\NALTREXONE HYDROCHLORIDE
     Dosage: 360 MG BUPROPION AND 32 MG NALTREXONE
     Route: 048
  16. BUPROPION HYDROCHLORIDE\NALTREXONE HYDROCHLORIDE [Interacting]
     Active Substance: BUPROPION HYDROCHLORIDE\NALTREXONE HYDROCHLORIDE
     Dosage: 360 MG BUPROPION AND 32 MG NALTREXONE
  17. VALPROATE [Interacting]
     Active Substance: VALPROIC ACID
     Indication: Seizure
     Dosage: 1000 MILLIGRAM
  18. VALPROATE [Interacting]
     Active Substance: VALPROIC ACID
     Dosage: 1000 MILLIGRAM
  19. VALPROATE [Interacting]
     Active Substance: VALPROIC ACID
     Dosage: 1000 MILLIGRAM
     Route: 042
  20. VALPROATE [Interacting]
     Active Substance: VALPROIC ACID
     Dosage: 1000 MILLIGRAM
     Route: 042
  21. VALPROATE [Interacting]
     Active Substance: VALPROIC ACID
     Dosage: 2000 MILLIGRAM (ONE HOUR LATER)
  22. VALPROATE [Interacting]
     Active Substance: VALPROIC ACID
     Dosage: 2000 MILLIGRAM (ONE HOUR LATER)
  23. VALPROATE [Interacting]
     Active Substance: VALPROIC ACID
     Dosage: 2000 MILLIGRAM (ONE HOUR LATER)
     Route: 042
  24. VALPROATE [Interacting]
     Active Substance: VALPROIC ACID
     Dosage: 2000 MILLIGRAM (ONE HOUR LATER)
     Route: 042
  25. VALPROATE [Interacting]
     Active Substance: VALPROIC ACID
     Dosage: 1 DOSAGE FORM (ONE HOUR LATER; 200MG/H)
  26. VALPROATE [Interacting]
     Active Substance: VALPROIC ACID
     Dosage: 1 DOSAGE FORM (ONE HOUR LATER; 200MG/H)
     Route: 065
  27. VALPROATE [Interacting]
     Active Substance: VALPROIC ACID
     Dosage: 1 DOSAGE FORM (ONE HOUR LATER; 200MG/H)
  28. VALPROATE [Interacting]
     Active Substance: VALPROIC ACID
     Dosage: 1 DOSAGE FORM (ONE HOUR LATER; 200MG/H)
     Route: 065
  29. FENTANYL [Interacting]
     Active Substance: FENTANYL
     Indication: Product used for unknown indication
     Dosage: DOSAGE: 0.1 ?G/KG/H
  30. FENTANYL [Interacting]
     Active Substance: FENTANYL
     Dosage: DOSAGE: 0.1 ?G/KG/H
     Route: 065
  31. FENTANYL [Interacting]
     Active Substance: FENTANYL
     Dosage: DOSAGE: 0.1 ?G/KG/H
     Route: 065
  32. FENTANYL [Interacting]
     Active Substance: FENTANYL
     Dosage: DOSAGE: 0.1 ?G/KG/H
  33. CANDESARTAN [Concomitant]
     Active Substance: CANDESARTAN
     Indication: Product used for unknown indication
     Dosage: 8 MILLIGRAM, QD
  34. CANDESARTAN [Concomitant]
     Active Substance: CANDESARTAN
     Dosage: 8 MILLIGRAM, QD
     Route: 065
  35. CANDESARTAN [Concomitant]
     Active Substance: CANDESARTAN
     Dosage: 8 MILLIGRAM, QD
     Route: 065
  36. CANDESARTAN [Concomitant]
     Active Substance: CANDESARTAN
     Dosage: 8 MILLIGRAM, QD
  37. ATORVASTATIN [Concomitant]
     Active Substance: ATORVASTATIN
     Indication: Product used for unknown indication
     Dosage: 40 MILLIGRAM, QD
  38. ATORVASTATIN [Concomitant]
     Active Substance: ATORVASTATIN
     Dosage: 40 MILLIGRAM, QD
     Route: 065
  39. ATORVASTATIN [Concomitant]
     Active Substance: ATORVASTATIN
     Dosage: 40 MILLIGRAM, QD
     Route: 065
  40. ATORVASTATIN [Concomitant]
     Active Substance: ATORVASTATIN
     Dosage: 40 MILLIGRAM, QD
  41. BUDESONIDE\FORMOTEROL [Concomitant]
     Active Substance: BUDESONIDE\FORMOTEROL
     Indication: Product used for unknown indication
     Dosage: 1 DOSAGE FORM, BID (160/4.5 ?G)
  42. BUDESONIDE\FORMOTEROL [Concomitant]
     Active Substance: BUDESONIDE\FORMOTEROL
     Dosage: 1 DOSAGE FORM, BID (160/4.5 ?G)
     Route: 065
  43. BUDESONIDE\FORMOTEROL [Concomitant]
     Active Substance: BUDESONIDE\FORMOTEROL
     Dosage: 1 DOSAGE FORM, BID (160/4.5 ?G)
     Route: 065
  44. BUDESONIDE\FORMOTEROL [Concomitant]
     Active Substance: BUDESONIDE\FORMOTEROL
     Dosage: 1 DOSAGE FORM, BID (160/4.5 ?G)
  45. OXAZEPAM [Concomitant]
     Active Substance: OXAZEPAM
     Indication: Product used for unknown indication
     Dosage: 10 MILLIGRAM
  46. OXAZEPAM [Concomitant]
     Active Substance: OXAZEPAM
     Dosage: 10 MILLIGRAM
     Route: 065
  47. OXAZEPAM [Concomitant]
     Active Substance: OXAZEPAM
     Dosage: 10 MILLIGRAM
     Route: 065
  48. OXAZEPAM [Concomitant]
     Active Substance: OXAZEPAM
     Dosage: 10 MILLIGRAM
  49. ZOPICLONE [Concomitant]
     Active Substance: ZOPICLONE
     Indication: Product used for unknown indication
     Dosage: 7.5 MILLIGRAM
  50. ZOPICLONE [Concomitant]
     Active Substance: ZOPICLONE
     Dosage: 7.5 MILLIGRAM
     Route: 065
  51. ZOPICLONE [Concomitant]
     Active Substance: ZOPICLONE
     Dosage: 7.5 MILLIGRAM
     Route: 065
  52. ZOPICLONE [Concomitant]
     Active Substance: ZOPICLONE
     Dosage: 7.5 MILLIGRAM
  53. METFORMIN [Concomitant]
     Active Substance: METFORMIN HYDROCHLORIDE
     Indication: Product used for unknown indication
     Dosage: 500 MILLIGRAM, TID
  54. METFORMIN [Concomitant]
     Active Substance: METFORMIN HYDROCHLORIDE
     Dosage: 500 MILLIGRAM, TID
     Route: 065
  55. METFORMIN [Concomitant]
     Active Substance: METFORMIN HYDROCHLORIDE
     Dosage: 500 MILLIGRAM, TID
     Route: 065
  56. METFORMIN [Concomitant]
     Active Substance: METFORMIN HYDROCHLORIDE
     Dosage: 500 MILLIGRAM, TID
  57. ACETAMINOPHEN [Concomitant]
     Active Substance: ACETAMINOPHEN
     Indication: Product used for unknown indication
     Dosage: 1 GRAM, PRN
  58. ACETAMINOPHEN [Concomitant]
     Active Substance: ACETAMINOPHEN
     Dosage: 1 GRAM, PRN
     Route: 065
  59. ACETAMINOPHEN [Concomitant]
     Active Substance: ACETAMINOPHEN
     Dosage: 1 GRAM, PRN
     Route: 065
  60. ACETAMINOPHEN [Concomitant]
     Active Substance: ACETAMINOPHEN
     Dosage: 1 GRAM, PRN
  61. MIDAZOLAM [Concomitant]
     Active Substance: MIDAZOLAM
     Dosage: 3 MILLIGRAM (ON THE DAY OF ADMISSION, AFTER THREE HOURS)
  62. MIDAZOLAM [Concomitant]
     Active Substance: MIDAZOLAM
     Dosage: 3 MILLIGRAM (ON THE DAY OF ADMISSION, AFTER THREE HOURS)
  63. MIDAZOLAM [Concomitant]
     Active Substance: MIDAZOLAM
     Dosage: 3 MILLIGRAM (ON THE DAY OF ADMISSION, AFTER THREE HOURS)
     Route: 042
  64. MIDAZOLAM [Concomitant]
     Active Substance: MIDAZOLAM
     Dosage: 3 MILLIGRAM (ON THE DAY OF ADMISSION, AFTER THREE HOURS)
     Route: 042
  65. MIDAZOLAM [Concomitant]
     Active Substance: MIDAZOLAM
     Dosage: UNK (AFTER ANOTHER HOUR, 1?3 M G INTRAVENOUSLY EVERY 45 MINUTES)
  66. MIDAZOLAM [Concomitant]
     Active Substance: MIDAZOLAM
     Dosage: UNK (AFTER ANOTHER HOUR, 1?3 M G INTRAVENOUSLY EVERY 45 MINUTES)
  67. MIDAZOLAM [Concomitant]
     Active Substance: MIDAZOLAM
     Dosage: UNK (AFTER ANOTHER HOUR, 1?3 M G INTRAVENOUSLY EVERY 45 MINUTES)
     Route: 042
  68. MIDAZOLAM [Concomitant]
     Active Substance: MIDAZOLAM
     Dosage: UNK (AFTER ANOTHER HOUR, 1?3 M G INTRAVENOUSLY EVERY 45 MINUTES)
     Route: 042
  69. MIDAZOLAM [Concomitant]
     Active Substance: MIDAZOLAM
     Dosage: 13 MILLIGRAM, ONCE (A TOTAL OF 13 MG OF MIDAZOLAM WAS ADMINISTERED OVERSIX HOURS)
  70. MIDAZOLAM [Concomitant]
     Active Substance: MIDAZOLAM
     Dosage: 13 MILLIGRAM, ONCE (A TOTAL OF 13 MG OF MIDAZOLAM WAS ADMINISTERED OVERSIX HOURS)
     Route: 065
  71. MIDAZOLAM [Concomitant]
     Active Substance: MIDAZOLAM
     Dosage: 13 MILLIGRAM, ONCE (A TOTAL OF 13 MG OF MIDAZOLAM WAS ADMINISTERED OVERSIX HOURS)
  72. MIDAZOLAM [Concomitant]
     Active Substance: MIDAZOLAM
     Dosage: 13 MILLIGRAM, ONCE (A TOTAL OF 13 MG OF MIDAZOLAM WAS ADMINISTERED OVERSIX HOURS)
     Route: 065
  73. MIDAZOLAM [Concomitant]
     Active Substance: MIDAZOLAM
     Dosage: 5 MILLIGRAM, ON THE DAY OF ADMISSION
  74. MIDAZOLAM [Concomitant]
     Active Substance: MIDAZOLAM
     Dosage: 5 MILLIGRAM, ON THE DAY OF ADMISSION
     Route: 030
  75. MIDAZOLAM [Concomitant]
     Active Substance: MIDAZOLAM
     Dosage: 5 MILLIGRAM, ON THE DAY OF ADMISSION
     Route: 030
  76. MIDAZOLAM [Concomitant]
     Active Substance: MIDAZOLAM
     Dosage: 5 MILLIGRAM, ON THE DAY OF ADMISSION

REACTIONS (2)
  - Serotonin syndrome [Recovered/Resolved]
  - Drug interaction [Recovered/Resolved]
